FAERS Safety Report 9020615 (Version 1)
Quarter: 2013Q1

REPORT INFORMATION
  Report Type: Spontaneous
  Country: US (occurrence: US)
  Receive Date: 20130119
  Receipt Date: 20130119
  Transmission Date: 20140127
  Serious: No
  Sender: FDA-Public Use
  Company Number: US-ALLERGAN-1207068US

PATIENT
  Age: 41 None
  Sex: Female

DRUGS (1)
  1. BOTOX COSMETIC [Suspect]
     Indication: SKIN WRINKLING
     Dosage: 24 UNITS, SINGLE
     Route: 030
     Dates: start: 20120511, end: 20120511

REACTIONS (5)
  - Burning sensation [Unknown]
  - Burning sensation [Unknown]
  - Muscular weakness [Unknown]
  - Headache [Unknown]
  - Wrong technique in drug usage process [Unknown]
